FAERS Safety Report 11482920 (Version 1)
Quarter: 2015Q3

REPORT INFORMATION
  Report Type: Spontaneous
  Country: US (occurrence: US)
  Receive Date: 20150903
  Receipt Date: 20150903
  Transmission Date: 20151125
  Serious: No
  Sender: FDA-Public Use
  Company Number: US-ELI_LILLY_AND_COMPANY-US201203001457

PATIENT
  Age: 77 Year
  Sex: Female
  Weight: 69.84 kg

DRUGS (9)
  1. CYMBALTA [Suspect]
     Active Substance: DULOXETINE HYDROCHLORIDE
     Dosage: 30 MG, QD
     Dates: start: 20120305, end: 20120319
  2. ORAL BLOOD GLUCOSE LOWERING DRUGS [Concomitant]
  3. CYMBALTA [Suspect]
     Active Substance: DULOXETINE HYDROCHLORIDE
     Indication: MAJOR DEPRESSION
     Dosage: 30 MG, QD
     Route: 048
     Dates: start: 20120131
  4. ASA [Concomitant]
     Active Substance: ASPIRIN
  5. CYMBALTA [Suspect]
     Active Substance: DULOXETINE HYDROCHLORIDE
     Dosage: 60 MG, QD
  6. NORTRIPTYLINE HYDROCHLORIDE. [Concomitant]
     Active Substance: NORTRIPTYLINE HYDROCHLORIDE
     Dosage: UNK, UNKNOWN
  7. LEVOTHYROXINE. [Concomitant]
     Active Substance: LEVOTHYROXINE
  8. TEMAZEPAM. [Concomitant]
     Active Substance: TEMAZEPAM
     Dosage: UNK, UNKNOWN
  9. ANTIHYPERTENSIVES [Concomitant]
     Active Substance: UNSPECIFIED INGREDIENT

REACTIONS (10)
  - Asthenia [Recovering/Resolving]
  - Nausea [Unknown]
  - Decreased appetite [Recovered/Resolved]
  - Psychotic disorder [Recovered/Resolved]
  - Lethargy [Recovered/Resolved]
  - Rash pruritic [Recovered/Resolved]
  - Intentional product misuse [Recovered/Resolved]
  - Aggression [Recovered/Resolved]
  - Constipation [Not Recovered/Not Resolved]
  - Urinary hesitation [Recovered/Resolved]

NARRATIVE: CASE EVENT DATE: 20120317
